FAERS Safety Report 24621054 (Version 2)
Quarter: 2025Q2

REPORT INFORMATION
  Report Type: Spontaneous
  Country: US (occurrence: US)
  Receive Date: 20241114
  Receipt Date: 20250401
  Transmission Date: 20250717
  Serious: Yes (Other)
  Sender: TRAVERE THERAPEUTICS
  Company Number: US-TRAVERE-2024TVT01126

PATIENT
  Age: 27 Year
  Sex: Male

DRUGS (8)
  1. FILSPARI [Suspect]
     Active Substance: SPARSENTAN
     Indication: Glomerular vascular disorder
     Route: 048
     Dates: start: 20241101
  2. FILSPARI [Suspect]
     Active Substance: SPARSENTAN
     Indication: IgA nephropathy
     Route: 048
  3. ATORVASTATIN [Concomitant]
     Active Substance: ATORVASTATIN
  4. FARXIGA [Concomitant]
     Active Substance: DAPAGLIFLOZIN PROPANEDIOL
  5. CLONIDINE [Concomitant]
     Active Substance: CLONIDINE
  6. AMLODIPINE BESYLATE [Concomitant]
     Active Substance: AMLODIPINE BESYLATE
  7. LOSARTAN POTASSIUM [Concomitant]
     Active Substance: LOSARTAN POTASSIUM
  8. FUROSEMIDE [Concomitant]
     Active Substance: FUROSEMIDE

REACTIONS (13)
  - Urine albumin/creatinine ratio increased [Unknown]
  - Glomerular filtration rate decreased [Unknown]
  - Urine protein/creatinine ratio increased [Unknown]
  - Protein total increased [Unknown]
  - Creatinine urine decreased [Unknown]
  - Blood parathyroid hormone increased [Unknown]
  - Blood creatinine increased [Unknown]
  - Blood sodium decreased [Unknown]
  - Cystatin C increased [Unknown]
  - Glucose urine present [Unknown]
  - Urinary occult blood positive [Unknown]
  - Protein urine present [Unknown]
  - Contraindicated product administered [Unknown]

NARRATIVE: CASE EVENT DATE: 20241226
